FAERS Safety Report 15617256 (Version 4)
Quarter: 2019Q1

REPORT INFORMATION
  Report Type: Spontaneous
  Country: US (occurrence: US)
  Receive Date: 20181114
  Receipt Date: 20190329
  Transmission Date: 20190417
  Serious: No
  Sender: FDA-Public Use
  Company Number: US-PFIZER INC-2018386364

PATIENT
  Age: 82 Year
  Sex: Female
  Weight: 72.57 kg

DRUGS (3)
  1. RAPAMUNE [Suspect]
     Active Substance: SIROLIMUS
     Indication: ORAL DISCOMFORT
     Dosage: 2 ML, DAILY (SWISH FOR 5 MINUTES AND SPIT)
     Route: 048
  2. RAPAMUNE [Suspect]
     Active Substance: SIROLIMUS
     Indication: ORAL LICHEN PLANUS
     Dosage: 2 ML, DAILY, (SWISH AND SPIT)
     Route: 048
     Dates: start: 201810
  3. RAPAMUNE [Suspect]
     Active Substance: SIROLIMUS
     Indication: PEMPHIGOID

REACTIONS (2)
  - Drug ineffective for unapproved indication [Not Recovered/Not Resolved]
  - Wrong technique in product usage process [Unknown]

NARRATIVE: CASE EVENT DATE: 201810
